FAERS Safety Report 19920609 (Version 3)
Quarter: 2021Q4

REPORT INFORMATION
  Report Type: Spontaneous
  Country: AR (occurrence: AR)
  Receive Date: 20211005
  Receipt Date: 20211109
  Transmission Date: 20220303
  Serious: Yes (Other)
  Sender: FDA-Public Use
  Company Number: AR-009507513-2109ARG007575

PATIENT
  Age: 71 Year
  Sex: Male

DRUGS (1)
  1. KEYTRUDA [Suspect]
     Active Substance: PEMBROLIZUMAB
     Indication: Malignant melanoma stage III
     Dosage: 400 MG, EVERY 6 WEEKS, FIRST DOSE
     Route: 042

REACTIONS (5)
  - Ophthalmoplegia [Recovering/Resolving]
  - Immune-mediated myositis [Recovering/Resolving]
  - Hepatic enzyme increased [Recovering/Resolving]
  - Incorrect dose administered [Unknown]
  - Inappropriate schedule of product administration [Unknown]
